FAERS Safety Report 5571735-2 (Version None)
Quarter: 2007Q4

REPORT INFORMATION
  Report Type: 
  Country: None (occurrence: None)
  Receive Date: 20071221
  Receipt Date: 20071220
  Transmission Date: 20080405
  Serious: Yes (Hospitalization)
  Sender: FDA-Public Use
  Company Number: A0700332A

PATIENT
  Age: 43 Year
  Sex: Female

DRUGS (6)
  1. AROPAX [Suspect]
     Indication: PANIC ATTACK
     Dosage: 40MG PER DAY
     Route: 048
     Dates: start: 20050101
  2. RIVOTRIL [Concomitant]
     Dosage: 3ML PER DAY
     Dates: start: 20030101
  3. FRONTAL [Concomitant]
     Dosage: 3ML PER DAY
     Dates: start: 20041201
  4. MIDAZOLAM HYDROCHLORIDE [Concomitant]
     Dates: start: 20040101
  5. PROGRAF [Concomitant]
     Dates: start: 20041201
  6. RAPAMYCIN [Concomitant]
     Dates: start: 20040101

REACTIONS (1)
  - TRANSPLANT REJECTION [None]
